FAERS Safety Report 12130377 (Version 1)
Quarter: 2016Q1

REPORT INFORMATION
  Report Type: Report from Study
  Country: US (occurrence: US)
  Receive Date: 20160229
  Receipt Date: 20160229
  Transmission Date: 20160526
  Serious: Yes (Death, Hospitalization)
  Sender: FDA-Public Use
  Company Number: US-ARIAD PHARMACEUTICALS, INC-2015US005279

PATIENT
  Age: 43 Year
  Sex: Female

DRUGS (3)
  1. ICLUSIG [Suspect]
     Active Substance: PONATINIB
     Indication: MYELOID LEUKAEMIA
     Dosage: 15 MG, WEEKLY
     Route: 048
     Dates: start: 20140904
  2. ICLUSIG [Suspect]
     Active Substance: PONATINIB
     Dosage: 15 MG, Q5D
  3. ICLUSIG [Suspect]
     Active Substance: PONATINIB
     Dosage: 30 MG, QD
     Route: 048

REACTIONS (2)
  - Death [Fatal]
  - Leukaemic infiltration [Unknown]

NARRATIVE: CASE EVENT DATE: 201602
